FAERS Safety Report 16955484 (Version 1)
Quarter: 2019Q4

REPORT INFORMATION
  Report Type: Spontaneous
  Country: US (occurrence: US)
  Receive Date: 20190904
  Receipt Date: 20190904
  Transmission Date: 20200122
  Serious: No
  Sender: FDA-Public Use
  Company Number: None

PATIENT

DRUGS (1)
  1. VASCEPA [Suspect]
     Active Substance: ICOSAPENT ETHYL
     Indication: BLOOD CHOLESTEROL
     Route: 048
     Dates: start: 20190731, end: 20190825

REACTIONS (3)
  - Decreased appetite [None]
  - Weight decreased [None]
  - Muscular weakness [None]

NARRATIVE: CASE EVENT DATE: 20190827
